FAERS Safety Report 8962520 (Version 1)
Quarter: 2012Q4

REPORT INFORMATION
  Report Type: 
  Country: GB (occurrence: None)
  Receive Date: 20121206
  Receipt Date: 20121206
  Transmission Date: 20130627
  Serious: Yes (Life-Threatening)
  Sender: FDA-Public Use
  Company Number: FK201203648

PATIENT
  Age: 33 Year
  Sex: Female
  Weight: 52 kg

DRUGS (1)
  1. LACTULOSE [Suspect]
     Indication: CONSTIPATION
     Route: 048

REACTIONS (2)
  - Renal failure [None]
  - Dehydration [None]
